FAERS Safety Report 9490841 (Version 1)
Quarter: 2013Q3

REPORT INFORMATION
  Report Type: Spontaneous
  Country: US (occurrence: None)
  Receive Date: 20130828
  Receipt Date: 20130828
  Transmission Date: 20140515
  Serious: Yes (Other)
  Sender: FDA-Public Use
  Company Number: None

PATIENT
  Age: 70 Year
  Sex: Female
  Weight: 55.79 kg

DRUGS (4)
  1. FLUTICASONE PROPIONATE NASAL SPRAY [Suspect]
     Indication: RHINITIS ALLERGIC
     Dosage: 2 PUFFS IN EACH NOSTRIL ONCE DAILY SPRAYED IN NOSE?7-20-13  1ST TIME?7-25-13  2ND TIME
     Route: 045
     Dates: start: 20130720, end: 20130725
  2. VERAMYST [Concomitant]
  3. FUROSEMIDE [Concomitant]
  4. ECOTRIN [Concomitant]

REACTIONS (3)
  - Dizziness [None]
  - Loss of consciousness [None]
  - Asthenia [None]
